FAERS Safety Report 6849132-9 (Version None)
Quarter: 2010Q3

REPORT INFORMATION
  Report Type: 
  Country: None (occurrence: None)
  Receive Date: 20100716
  Receipt Date: 20100715
  Transmission Date: 20110219
  Serious: Yes (Other)
  Sender: FDA-Public Use
  Company Number: CA-WYE-G06146810

PATIENT
  Age: 50 Year
  Sex: Female

DRUGS (1)
  1. PRISTIQ [Suspect]
     Indication: MAJOR DEPRESSION
     Dosage: 50 MG EVERY
     Route: 048
     Dates: start: 20100101

REACTIONS (1)
  - SUICIDAL IDEATION [None]
